FAERS Safety Report 6390118-9 (Version None)
Quarter: 2009Q4

REPORT INFORMATION
  Report Type: 
  Country: None (occurrence: None)
  Receive Date: 20091006
  Receipt Date: 20090923
  Transmission Date: 20100525
  Serious: Yes (Other)
  Sender: FDA-Public Use
  Company Number: ES-JNJFOC-20090805681

PATIENT
  Age: 39 Year
  Sex: Female

DRUGS (6)
  1. ZALDIAR [Suspect]
     Indication: NEUROPATHY PERIPHERAL
     Route: 048
  2. RABEPRAZOLE [Suspect]
     Indication: DRUG USE FOR UNKNOWN INDICATION
     Route: 048
  3. NAPROXEN [Suspect]
     Indication: NEUROPATHY PERIPHERAL
     Route: 048
  4. LORAZEPAM [Suspect]
     Indication: ANXIETY
     Route: 048
  5. HYDROCHLOROTHIAZIDE [Suspect]
     Indication: HYPERTENSION
     Route: 048
  6. ADALAT [Suspect]
     Indication: HYPERTENSION
     Route: 048

REACTIONS (2)
  - ABORTION [None]
  - DRUG EXPOSURE DURING PREGNANCY [None]
